FAERS Safety Report 5324373-0 (Version None)
Quarter: 2007Q2

REPORT INFORMATION
  Report Type: 
  Country: None (occurrence: None)
  Receive Date: 20070514
  Receipt Date: 20070504
  Transmission Date: 20071010
  Serious: Yes (Hospitalization)
  Sender: FDA-Public Use
  Company Number: FR-ABBOTT-07P-056-0358398-00

PATIENT
  Age: 58 Year
  Sex: Male
  Weight: 82 kg

DRUGS (8)
  1. NORVIR [Suspect]
     Indication: ACQUIRED IMMUNODEFICIENCY SYNDROME
     Route: 048
     Dates: start: 19990515, end: 20070105
  2. NORVIR [Suspect]
     Dates: start: 20070223
  3. APTIVUS [Suspect]
     Indication: ACQUIRED IMMUNODEFICIENCY SYNDROME
     Route: 048
     Dates: start: 20061026, end: 20070105
  4. ENFUVIRTIDE [Suspect]
     Indication: ACQUIRED IMMUNODEFICIENCY SYNDROME
     Route: 058
     Dates: start: 20061026, end: 20070105
  5. ENFUVIRTIDE [Suspect]
     Dates: start: 20070223
  6. EMBTRICITABINE/TENOFOVIR [Suspect]
     Indication: ACQUIRED IMMUNODEFICIENCY SYNDROME
     Route: 048
     Dates: start: 20061026, end: 20070105
  7. EMBTRICITABINE/TENOFOVIR [Suspect]
     Dates: start: 20070223
  8. TMC114 [Concomitant]
     Indication: DRUG USE FOR UNKNOWN INDICATION
     Dates: start: 20070223

REACTIONS (21)
  - ABDOMINAL PAIN UPPER [None]
  - ALANINE AMINOTRANSFERASE INCREASED [None]
  - ANOREXIA [None]
  - ARTHRALGIA [None]
  - ASPARTATE AMINOTRANSFERASE INCREASED [None]
  - ASTHENIA [None]
  - BLOOD ALKALINE PHOSPHATASE INCREASED [None]
  - DIARRHOEA [None]
  - DYSAESTHESIA [None]
  - GAMMA-GLUTAMYLTRANSFERASE INCREASED [None]
  - GENERAL PHYSICAL HEALTH DETERIORATION [None]
  - HEADACHE [None]
  - HEPATIC ENZYME INCREASED [None]
  - HYPERSOMNIA [None]
  - JAUNDICE [None]
  - LIVER DISORDER [None]
  - MUSCULOSKELETAL STIFFNESS [None]
  - MYALGIA [None]
  - PYREXIA [None]
  - SKIN BURNING SENSATION [None]
  - WEIGHT DECREASED [None]
